FAERS Safety Report 23306470 (Version 1)
Quarter: 2023Q4

REPORT INFORMATION
  Report Type: Spontaneous
  Country: US (occurrence: US)
  Receive Date: 20231218
  Receipt Date: 20231218
  Transmission Date: 20240110
  Serious: Yes (Hospitalization, Other)
  Sender: FDA-Public Use
  Company Number: US-CHEPLA-2023015939

PATIENT
  Age: 70 Year
  Sex: Female

DRUGS (20)
  1. CLONAZEPAM [Interacting]
     Active Substance: CLONAZEPAM
     Indication: Suicide attempt
     Dates: end: 20230923
  2. BENADRYL [Interacting]
     Active Substance: DIPHENHYDRAMINE HYDROCHLORIDE
     Indication: Suicide attempt
  3. INGREZZA [Interacting]
     Active Substance: VALBENAZINE
     Indication: Tardive dyskinesia
     Dosage: DAILY DOSE: 80 MILLIGRAM
     Route: 048
     Dates: start: 20200102, end: 20221222
  4. INGREZZA [Interacting]
     Active Substance: VALBENAZINE
     Indication: Tardive dyskinesia
     Dosage: THE PATIENT WAS ON 60 MG AND 80 MG INGREZZA WITH A PLAN TO TAPER OFF.
     Route: 048
     Dates: start: 2023
  5. CORMAX [Concomitant]
     Active Substance: CLOBETASOL PROPIONATE
     Dates: start: 20231117
  6. NYSTOP [Concomitant]
     Active Substance: NYSTATIN
     Dates: start: 20221005
  7. ASPIRIN [Concomitant]
     Active Substance: ASPIRIN
  8. SINEMET [Concomitant]
     Active Substance: CARBIDOPA\LEVODOPA
  9. VITAMIN D3 [Concomitant]
     Active Substance: CHOLECALCIFEROL
     Dates: start: 20210812
  10. FLONASE [Concomitant]
     Active Substance: FLUTICASONE PROPIONATE
     Dates: start: 20230720, end: 20231018
  11. NEURONTIN [Concomitant]
     Active Substance: GABAPENTIN
     Dates: end: 20231005
  12. HYDROCORTISONE [Concomitant]
     Active Substance: HYDROCORTISONE
     Dates: start: 20170623
  13. SYNTHROID [Concomitant]
     Active Substance: LEVOTHYROXINE SODIUM
     Dates: start: 20230619, end: 20230927
  14. VITAMINS [Concomitant]
     Active Substance: VITAMINS
  15. PRAVACHOL [Concomitant]
     Active Substance: PRAVASTATIN SODIUM
     Dates: start: 20230724
  16. METAMUCIL [Concomitant]
     Active Substance: PLANTAGO SEED
     Dates: start: 20230403
  17. ZANAFLEX [Concomitant]
     Active Substance: TIZANIDINE HYDROCHLORIDE
     Dates: start: 20230428, end: 20231010
  18. VIIBRYD [Concomitant]
     Active Substance: VILAZODONE HYDROCHLORIDE
     Dates: start: 20220517
  19. ARICEPT [Concomitant]
     Active Substance: DONEPEZIL HYDROCHLORIDE
     Dates: end: 20230923
  20. INDERAL [Concomitant]
     Active Substance: PROPRANOLOL HYDROCHLORIDE
     Dates: start: 20230801, end: 20230927

REACTIONS (5)
  - Suicide attempt [Recovered/Resolved]
  - Intentional overdose [Recovered/Resolved]
  - Acute respiratory failure [Recovered/Resolved]
  - Toxic encephalopathy [Recovering/Resolving]
  - Shock [Recovering/Resolving]

NARRATIVE: CASE EVENT DATE: 20230917
